FAERS Safety Report 5776165-6 (Version None)
Quarter: 2008Q2

REPORT INFORMATION
  Report Type: 
  Country: None (occurrence: None)
  Receive Date: 20080613
  Receipt Date: 20080530
  Transmission Date: 20081010
  Serious: Yes (Other)
  Sender: FDA-Public Use
  Company Number: DEM-2008-00535

PATIENT
  Age: 56 Year
  Sex: Male

DRUGS (1)
  1. BELSAR(OLMESARTAN MEDOXOMIL) (TABLET) (OLMESARTAN MEDOXOMIL) [Suspect]
     Indication: HYPERTENSION
     Dosage: (1 IN 1 D), ORAL
     Route: 048
     Dates: start: 20080312, end: 20080507

REACTIONS (3)
  - CARDIAC DISCOMFORT [None]
  - DYSPNOEA [None]
  - PALPITATIONS [None]
